FAERS Safety Report 8493907-X (Version None)
Quarter: 2012Q3

REPORT INFORMATION
  Report Type: 
  Country: None (occurrence: None)
  Receive Date: 20120708
  Receipt Date: 20120705
  Transmission Date: 20120928
  Serious: Yes (Other)
  Sender: FDA-Public Use
  Company Number: CA-BAYER-2012-066850

PATIENT
  Age: 41 Year
  Sex: Female

DRUGS (2)
  1. CLOTRIMAZOLE [Suspect]
     Dosage: UNK
     Dates: start: 20120627
  2. CLOTRIMAZOLE [Suspect]

REACTIONS (1)
  - VAGINAL HAEMORRHAGE [None]
